FAERS Safety Report 4301326-2 (Version None)
Quarter: 2004Q1

REPORT INFORMATION
  Report Type: 
  Country: None (occurrence: None)
  Receive Date: 20040223
  Receipt Date: 20030210
  Transmission Date: 20041129
  Serious: No
  Sender: FDA-Public Use
  Company Number: US-GLAXOSMITHKLINE-A0396280A

PATIENT
  Sex: Female

DRUGS (9)
  1. NAVELBINE [Suspect]
     Indication: BREAST CANCER
     Dosage: 40MG WEEKLY
     Route: 042
     Dates: start: 20021230, end: 20030301
  2. PSYCHOTROPIC DRUGS [Concomitant]
     Indication: DEPRESSION
  3. PROTEIN [Concomitant]
     Route: 048
  4. VITAMIN C [Concomitant]
  5. OMEGA 3 FATTY ACID [Concomitant]
  6. MINERAL TAB [Concomitant]
  7. MULTIVITAMIN [Concomitant]
  8. AMINO ACIDS [Concomitant]
  9. UNKNOWN MEDICATION [Concomitant]

REACTIONS (6)
  - BODY TEMPERATURE DECREASED [None]
  - FEELING ABNORMAL [None]
  - HYPOTRICHOSIS [None]
  - MADAROSIS [None]
  - PARAESTHESIA [None]
  - TINNITUS [None]
